FAERS Safety Report 8784589 (Version 2)
Quarter: 2013Q2

REPORT INFORMATION
  Report Type: Spontaneous
  Country: US (occurrence: None)
  Receive Date: 20120830
  Receipt Date: 20130506
  Transmission Date: 20140414
  Serious: Yes (Other)
  Sender: FDA-Public Use
  Company Number: ADR-2012-01593

PATIENT
  Age: 55 Year
  Sex: Female

DRUGS (2)
  1. LIORESAL INTRATHECAL [Suspect]
     Indication: MUSCLE SPASTICITY
     Dosage: /DAY
  2. LIORESAL INTRATHECAL [Suspect]
     Indication: MULTIPLE SCLEROSIS
     Dosage: /DAY

REACTIONS (6)
  - Implant site infection [None]
  - Withdrawal syndrome [None]
  - Oxygen saturation decreased [None]
  - Muscle spasticity [None]
  - Miosis [None]
  - Confusional state [None]
